FAERS Safety Report 7096381-3 (Version None)
Quarter: 2010Q4

REPORT INFORMATION
  Report Type: 
  Country: None (occurrence: None)
  Receive Date: 20101111
  Receipt Date: 20100930
  Transmission Date: 20110411
  Serious: No
  Sender: FDA-Public Use
  Company Number: US-BRISTOL-MYERS SQUIBB COMPANY-15283401

PATIENT
  Age: 75 Year
  Sex: Female

DRUGS (10)
  1. IXEMPRA KIT [Suspect]
     Indication: BREAST CANCER METASTATIC
     Route: 042
     Dates: start: 20090420
  2. XELODA [Concomitant]
     Dosage: DOSAGE:14DAYS ON/7DAYS OFF
  3. ZOMETA [Concomitant]
     Dosage: 1 DF:3.3 TO 3.5MG
     Route: 042
  4. OSCAL [Concomitant]
  5. MULTI-VITAMINS [Concomitant]
     Dosage: 1 DF= 8 UNIT NOS
  6. ASPIRIN [Concomitant]
  7. VITAMIN B6 [Concomitant]
  8. LORAZEPAM [Concomitant]
  9. GABAPENTIN [Concomitant]
  10. TRIAMTERENE [Concomitant]

REACTIONS (2)
  - DRUG ADMINISTRATION ERROR [None]
  - NO ADVERSE EVENT [None]
